APPROVED DRUG PRODUCT: ALBUTEROL SULFATE
Active Ingredient: ALBUTEROL SULFATE
Strength: EQ 2MG BASE/5ML
Dosage Form/Route: SYRUP;ORAL
Application: A074454 | Product #001
Applicant: COSETTE PHARMACEUTICALS INC
Approved: Sep 25, 1995 | RLD: No | RS: No | Type: DISCN